FAERS Safety Report 8739942 (Version 3)
Quarter: 2013Q1

REPORT INFORMATION
  Report Type: Spontaneous
  Country: US (occurrence: US)
  Receive Date: 20120823
  Receipt Date: 20130104
  Transmission Date: 20140127
  Serious: No
  Sender: FDA-Public Use
  Company Number: US-009507513-1208USA001145

PATIENT
  Sex: 0

DRUGS (2)
  1. IMPLANON [Suspect]
     Indication: CONTRACEPTION
     Dosage: 1 ROD EVERY 3 YEARS
     Dates: start: 20110914
  2. LAMICTAL [Concomitant]

REACTIONS (3)
  - Device dislocation [Unknown]
  - Device difficult to use [Unknown]
  - Weight increased [Unknown]
